FAERS Safety Report 8991433 (Version 1)
Quarter: 2012Q4

REPORT INFORMATION
  Report Type: 
  Country: FR (occurrence: FR)
  Receive Date: 20121229
  Receipt Date: 20121229
  Transmission Date: 20130627
  Serious: Yes (Hospitalization)
  Sender: FDA-Public Use
  Company Number: FR-BAXTER-2012BAX028765

PATIENT
  Age: 70 Year
  Sex: Female

DRUGS (6)
  1. NAVELBINE [Suspect]
     Indication: INFILTRATING DUCTAL BREAST CANCER
     Route: 048
     Dates: start: 20110415, end: 20120910
  2. XELODA [Suspect]
     Indication: INFILTRATING DUCTAL BREAST CANCER
     Route: 048
     Dates: start: 20110624, end: 20120910
  3. FASLODEX [Suspect]
     Indication: INFILTRATING DUCTAL BREAST CANCER
     Dosage: 1 U
     Route: 030
     Dates: start: 20101001
  4. TAXOTERE [Suspect]
     Indication: INFILTRATING DUCTAL BREAST CANCER
     Route: 042
     Dates: start: 200304, end: 200308
  5. FARMORUBICIN [Suspect]
     Indication: INFILTRATING DUCTAL BREAST CANCER
     Route: 065
     Dates: start: 200304, end: 200308
  6. PAMIDRONATE [Concomitant]
     Indication: OSTEOPOROSIS PROPHYLAXIS
     Route: 065
     Dates: start: 201010

REACTIONS (3)
  - Cardiac failure [Recovering/Resolving]
  - Cytotoxic cardiomyopathy [Recovering/Resolving]
  - Ejection fraction decreased [Recovering/Resolving]
